FAERS Safety Report 8993518 (Version 1)
Quarter: 2013Q1

REPORT INFORMATION
  Report Type: Spontaneous
  Country: DE (occurrence: DE)
  Receive Date: 20130102
  Receipt Date: 20130102
  Transmission Date: 20140127
  Serious: Yes (Other)
  Sender: FDA-Public Use
  Company Number: DE-MYLANLABS-2012S1026089

PATIENT
  Sex: Female
  Weight: 77 kg

DRUGS (6)
  1. ATORVASTATIN [Suspect]
     Indication: MUSCLE SPASMS
     Route: 048
     Dates: start: 201205
  2. BEZAFIBRATE [Suspect]
     Indication: MUSCLE SPASMS
     Route: 048
     Dates: start: 201204
  3. INEGY [Suspect]
     Indication: MYALGIA
     Route: 048
     Dates: start: 201108
  4. FLUVASTATIN [Suspect]
     Indication: MYALGIA
     Route: 048
     Dates: start: 201109
  5. TREDAPTIVE [Suspect]
     Indication: ABDOMINAL PAIN UPPER
     Route: 048
     Dates: start: 201209
  6. EZETROL [Suspect]
     Indication: ABDOMINAL PAIN UPPER
     Route: 048
     Dates: start: 201209

REACTIONS (3)
  - Gastrointestinal disorder [Recovered/Resolved]
  - Musculoskeletal discomfort [Recovered/Resolved]
  - Gamma-glutamyltransferase increased [Recovered/Resolved]
